FAERS Safety Report 6667013-0 (Version None)
Quarter: 2010Q2

REPORT INFORMATION
  Report Type: 
  Country: None (occurrence: None)
  Receive Date: 20100405
  Receipt Date: 20100326
  Transmission Date: 20101027
  Serious: Yes (Other)
  Sender: FDA-Public Use
  Company Number: US-RB-005643-10

PATIENT
  Age: 45 Year
  Sex: Female

DRUGS (5)
  1. SUBOXONE [Suspect]
     Route: 060
     Dates: start: 20100326
  2. SUBOXONE [Suspect]
     Route: 060
     Dates: start: 20100309, end: 20100325
  3. SOMA [Concomitant]
     Dosage: 6 DAILY
     Route: 065
  4. ATENOLOL [Concomitant]
     Route: 065
  5. VALIUM [Concomitant]
     Indication: ANXIETY DISORDER
     Dosage: 20-40 MG DAILY
     Route: 065

REACTIONS (3)
  - HALLUCINATION [None]
  - HALLUCINATION, AUDITORY [None]
  - PALPITATIONS [None]
